FAERS Safety Report 22630183 (Version 1)
Quarter: 2023Q2

REPORT INFORMATION
  Report Type: Spontaneous
  Country: NL (occurrence: NL)
  Receive Date: 20230622
  Receipt Date: 20230622
  Transmission Date: 20230722
  Serious: Yes (Congenital Anomaly)
  Sender: FDA-Public Use
  Company Number: None

PATIENT
  Sex: Female
  Weight: 75 kg

DRUGS (10)
  1. METRONIDAZOLE [Suspect]
     Active Substance: METRONIDAZOLE
     Indication: Helicobacter gastritis
     Dosage: 1000 MILLIGRAM DAILY; 1 TABLET 2 TIMES A DAY , BRAND NAME NOT SPECIFIED
     Route: 065
     Dates: start: 20230412
  2. PANTOPRAZOLE SODIUM [Suspect]
     Active Substance: PANTOPRAZOLE SODIUM
     Indication: Regurgitation
     Dosage: 80 MILLIGRAM DAILY; 1 TABLET 2 TIMES A DAY, PANTOPRAZOL TABLET MSR 40MG / BRAND NAME NOT SPECIFIED
     Route: 065
     Dates: start: 20230116
  3. PANTOPRAZOLE SODIUM [Suspect]
     Active Substance: PANTOPRAZOLE SODIUM
     Indication: Gastritis
  4. LEVOFLOXACIN [Suspect]
     Active Substance: LEVOFLOXACIN
     Indication: Helicobacter gastritis
     Dosage: 1000 MILLIGRAM DAILY;  BRAND NAME NOT SPECIFIED, 1 TABLET 2 TIMES A DAY
     Route: 065
     Dates: start: 20230412
  5. HYDROXYCHLOROQUINE [Concomitant]
     Active Substance: HYDROXYCHLOROQUINE
     Indication: Product used for unknown indication
     Dosage: 200 MG (MILLIGRAMS), BRAND NAME NOT SPECIFIED
     Route: 065
  6. SALAZOPYRINE EC [Concomitant]
     Indication: Product used for unknown indication
     Dosage: 500 MG (MILLIGRAMS), SULFASALAZINE TABLET MSR 500MG / SALAZOPYRINE EC TABLET MSR 500MG
     Route: 065
  7. VOLCOLON [Concomitant]
     Indication: Product used for unknown indication
     Dosage: SACHET (GRANULES), 3.6 G (GRAM), PLANTAGO OVATA GRANULES 3,6G / VOLCOLON GRANULES SUGAR FREE 4G IN S
  8. HYRIMOZ [Concomitant]
     Active Substance: ADALIMUMAB-ADAZ
     Indication: Product used for unknown indication
     Dosage: 50 MG/ML (MILLIGRAMS PER MILLILITER), ADALIMUMAB INJVLST 50MG/ML / HYRIMOZ 40MG INJVLST 50MG/ML WWS
     Route: 065
  9. ARTELAC [Concomitant]
     Indication: Product used for unknown indication
     Dosage: 3.2 MG/ML (MILLIGRAMS PER MILLILITER), HYPROMELLOSE EYE DROPS 3,2MG/ML / ARTELAC EYE DROPS 3,2MG/ML
     Route: 065
  10. POLYETHYLENE GLYCOLS [Concomitant]
     Active Substance: POLYETHYLENE GLYCOLS
     Indication: Product used for unknown indication
     Dosage: MACROGOL/SALTS PDR V BEVERAGE (MOVIC/MOLAX/LAXT/GEN) / BRAND NAME NOT SPECIFIED
     Route: 065

REACTIONS (2)
  - Rheumatoid arthritis [Recovering/Resolving]
  - Arthralgia [Recovering/Resolving]
